FAERS Safety Report 5052799-1 (Version None)
Quarter: 2006Q3

REPORT INFORMATION
  Report Type: 
  Country: None (occurrence: None)
  Receive Date: 20060713
  Receipt Date: 20060713
  Transmission Date: 20061208
  Serious: Yes (Other)
  Sender: FDA-Public Use
  Company Number: None

PATIENT
  Sex: Male
  Weight: 55.3 kg

DRUGS (11)
  1. XIFAXAN [Suspect]
     Indication: COLITIS
     Dosage: 400 MG  Q8 H PO
     Route: 048
     Dates: start: 20060701, end: 20060710
  2. SOTALOL HCL [Concomitant]
  3. OCTREOTIDE ACETATE [Concomitant]
  4. GLUTAMINE [Concomitant]
  5. RIFAXIMIN [Concomitant]
  6. METOCLOPRAMIDE [Concomitant]
  7. LEVOTHYROXINE SODIUM [Concomitant]
  8. ENOXAPARIN [Concomitant]
  9. ESOMEPRAZOLE [Concomitant]
  10. VANCOMYCIN [Concomitant]
  11. IMIPENEM [Concomitant]

REACTIONS (1)
  - PATHOGEN RESISTANCE [None]
